FAERS Safety Report 5970823-6 (Version None)
Quarter: 2008Q4

REPORT INFORMATION
  Report Type: 
  Country: None (occurrence: None)
  Receive Date: 20081127
  Receipt Date: 20081117
  Transmission Date: 20090506
  Serious: Yes (Death)
  Sender: FDA-Public Use
  Company Number: GB-RANBAXY-2008RR-19383

PATIENT
  Age: 40 Year
  Sex: Female

DRUGS (2)
  1. PARACETAMOL [Suspect]
  2. FK-506 [Concomitant]

REACTIONS (2)
  - ACUTE HEPATIC FAILURE [None]
  - DRUG TOXICITY [None]
